FAERS Safety Report 5474864-7 (Version None)
Quarter: 2007Q3

REPORT INFORMATION
  Report Type: 
  Country: None (occurrence: None)
  Receive Date: 20070928
  Receipt Date: 20070919
  Transmission Date: 20080115
  Serious: Yes (Death, Other)
  Sender: FDA-Public Use
  Company Number: 2007-00096

PATIENT
  Age: 60 Year
  Sex: Female
  Weight: 45 kg

DRUGS (14)
  1. VELCADE [Suspect]
     Indication: MULTIPLE MYELOMA
     Dosage: 1.40 MG, INTRAVENOUS
     Route: 042
     Dates: start: 20061218, end: 20061225
  2. DEXAMETHASONE 0.5MG TAB [Concomitant]
  3. MUCOSTA (REBAMIPIDE) [Concomitant]
  4. TOLEDOMIN (MILNACIPRAN HYDROCHLORIDE) [Concomitant]
  5. BAKTAR (SULFAMETHOXAZOLE, TRIMETHOPRIM) [Concomitant]
  6. PURSENNID (SENNA LEAF) [Concomitant]
  7. LANSOPRAZOLE [Concomitant]
  8. FENTANYL [Concomitant]
  9. FIRSTCIN (CEFOZOPRAN HYDROCHLORIDE) [Concomitant]
  10. PIPERACILLIN SODIUM AND TAZOBACTAM SODIUM [Concomitant]
  11. FUNGUARD [Concomitant]
  12. RED BLOOD CELLS [Concomitant]
  13. PLATELETS [Concomitant]
  14. GRAN [Concomitant]

REACTIONS (11)
  - ANAEMIA [None]
  - BONE MARROW FAILURE [None]
  - BONE NEOPLASM [None]
  - CONDITION AGGRAVATED [None]
  - DISEASE PROGRESSION [None]
  - DYSPNOEA [None]
  - NEUTROPENIA [None]
  - PLATELET COUNT DECREASED [None]
  - PLEURAL EFFUSION [None]
  - PNEUMONIA [None]
  - RESPIRATORY DISORDER [None]
